FAERS Safety Report 8026038-3 (Version None)
Quarter: 2012Q1

REPORT INFORMATION
  Report Type: 
  Country: None (occurrence: None)
  Receive Date: 20120105
  Receipt Date: 20110726
  Transmission Date: 20120608
  Serious: No
  Sender: FDA-Public Use
  Company Number: US-ABBOTT-11P-163-0842277-00

PATIENT
  Sex: Female

DRUGS (4)
  1. ZESTIRIL [Concomitant]
     Indication: HYPERTENSION
  2. LORAZEPAM [Concomitant]
     Indication: ANXIETY
  3. SYNTHROID [Suspect]
     Route: 048
     Dates: start: 19980101
  4. SYNTHROID [Suspect]
     Indication: HYPOTHYROIDISM
     Route: 048
     Dates: start: 20090101

REACTIONS (5)
  - PRODUCT SIZE ISSUE [None]
  - PALPITATIONS [None]
  - PRODUCT COLOUR ISSUE [None]
  - FATIGUE [None]
  - HYPERHIDROSIS [None]
